FAERS Safety Report 19209895 (Version 1)
Quarter: 2021Q2

REPORT INFORMATION
  Report Type: Spontaneous
  Country: US (occurrence: US)
  Receive Date: 20210504
  Receipt Date: 20210504
  Transmission Date: 20210717
  Serious: No
  Sender: FDA-Public Use
  Company Number: US-SA-2021SA145234

PATIENT
  Age: 57 Year
  Sex: Female

DRUGS (2)
  1. VITAMIN D NOS [Concomitant]
     Active Substance: VITAMIN D NOS
  2. DUPIXENT [Suspect]
     Active Substance: DUPILUMAB
     Indication: ASTHMA
     Dosage: 300 MG
     Route: 058
     Dates: start: 20210129

REACTIONS (2)
  - Product use issue [Unknown]
  - Rash [Unknown]

NARRATIVE: CASE EVENT DATE: 20210129
